FAERS Safety Report 5226491-4 (Version None)
Quarter: 2007Q1

REPORT INFORMATION
  Report Type: 
  Country: None (occurrence: None)
  Receive Date: 20070201
  Receipt Date: 20070123
  Transmission Date: 20070707
  Serious: Yes (Other)
  Sender: FDA-Public Use
  Company Number: CA-PFIZER INC-2006140328

PATIENT
  Sex: Female
  Weight: 74.8 kg

DRUGS (4)
  1. LIPITOR [Suspect]
     Indication: BLOOD CHOLESTEROL
     Route: 048
     Dates: start: 20050224, end: 20060423
  2. APO-TRIAZIDE [Concomitant]
     Indication: HYPERTENSION
     Route: 048
  3. LOPRESSOR [Concomitant]
     Indication: HYPERTENSION
     Route: 048
  4. NORVASC [Concomitant]
     Indication: HYPERTENSION
     Route: 048

REACTIONS (11)
  - ABASIA [None]
  - ARTHROPATHY [None]
  - FLATULENCE [None]
  - KAPOSI'S SARCOMA [None]
  - MUSCLE DISORDER [None]
  - OEDEMA PERIPHERAL [None]
  - PAIN IN EXTREMITY [None]
  - PERIPHERAL ARTERIAL OCCLUSIVE DISEASE [None]
  - SKIN DISCOLOURATION [None]
  - SKIN ULCER [None]
  - VARICOSE VEIN [None]
